FAERS Safety Report 17049303 (Version 1)
Quarter: 2019Q4

REPORT INFORMATION
  Report Type: Spontaneous
  Country: US (occurrence: US)
  Receive Date: 20191021
  Receipt Date: 20191021
  Transmission Date: 20200122
  Serious: Yes (Hospitalization)
  Sender: FDA-Public Use
  Company Number: None

PATIENT
  Age: 68 Year
  Sex: Female

DRUGS (1)
  1. INLYTA [Suspect]
     Active Substance: AXITINIB
     Dosage: ?          OTHER FREQUENCY:Q12HRS;?
     Route: 048
     Dates: start: 20181104

REACTIONS (1)
  - Toe amputation [None]

NARRATIVE: CASE EVENT DATE: 20191006
